FAERS Safety Report 7390868-1 (Version None)
Quarter: 2011Q2

REPORT INFORMATION
  Report Type: 
  Country: None (occurrence: None)
  Receive Date: 20110404
  Receipt Date: 20110322
  Transmission Date: 20111010
  Serious: No
  Sender: FDA-Public Use
  Company Number: US-BIOGENIDEC-2011BI011982

PATIENT
  Sex: Male

DRUGS (3)
  1. TYSABRI [Suspect]
     Indication: MULTIPLE SCLEROSIS
     Route: 042
     Dates: start: 20100416
  2. LIDODERM [Concomitant]
     Indication: ANALGESIC THERAPY
  3. RITALIN [Concomitant]
     Indication: PRODUCT USED FOR UNKNOWN INDICATION
     Route: 048

REACTIONS (6)
  - RADICULOPATHY [None]
  - DEMYELINATION [None]
  - RELAPSING-REMITTING MULTIPLE SCLEROSIS [None]
  - FATIGUE [None]
  - ASTHENIA [None]
  - HYPERAESTHESIA [None]
